FAERS Safety Report 7225509-7 (Version None)
Quarter: 2011Q1

REPORT INFORMATION
  Report Type: 
  Country: None (occurrence: None)
  Receive Date: 20110113
  Receipt Date: 20110107
  Transmission Date: 20110831
  Serious: Yes (Hospitalization, Disabling)
  Sender: FDA-Public Use
  Company Number: US-MERCK-1008USA03504

PATIENT
  Age: 50 Year
  Sex: Female

DRUGS (4)
  1. FOSAMAX [Suspect]
     Indication: OSTEOPENIA
     Route: 048
     Dates: start: 19991101, end: 20100421
  2. FOSAMAX PLUS D [Suspect]
     Indication: OSTEOPENIA
     Route: 048
     Dates: start: 20050701, end: 20100201
  3. FOSAMAX [Suspect]
     Route: 048
     Dates: start: 20050701, end: 20100201
  4. FOSAMAX [Suspect]
     Route: 048
     Dates: start: 19991101

REACTIONS (19)
  - BACK PAIN [None]
  - FEMUR FRACTURE [None]
  - LOW TURNOVER OSTEOPATHY [None]
  - EXOSTOSIS [None]
  - BLOOD CHOLESTEROL INCREASED [None]
  - CLAVICLE FRACTURE [None]
  - OSTEOARTHRITIS [None]
  - VITAMIN B12 DEFICIENCY [None]
  - UPPER-AIRWAY COUGH SYNDROME [None]
  - STRESS FRACTURE [None]
  - ARTHRALGIA [None]
  - INTERVERTEBRAL DISC DEGENERATION [None]
  - PARAESTHESIA [None]
  - ORAL PUSTULE [None]
  - FEELING ABNORMAL [None]
  - OSTEOPOROSIS [None]
  - TOOTH DISORDER [None]
  - SCOLIOSIS [None]
  - COMPRESSION FRACTURE [None]
